FAERS Safety Report 7284002-6 (Version None)
Quarter: 2011Q1

REPORT INFORMATION
  Report Type: 
  Country: None (occurrence: None)
  Receive Date: 20110209
  Receipt Date: 20110207
  Transmission Date: 20110831
  Serious: Yes (Death, Other)
  Sender: FDA-Public Use
  Company Number: BR-ABBOTT-11P-020-0703251-00

PATIENT
  Sex: Male

DRUGS (1)
  1. HUMIRA [Suspect]
     Indication: ANKYLOSING SPONDYLITIS

REACTIONS (7)
  - INFARCTION [None]
  - MUSCLE ATROPHY [None]
  - MEDICAL DEVICE COMPLICATION [None]
  - INFLAMMATION [None]
  - JOINT STIFFNESS [None]
  - CHONDROPATHY [None]
  - PAIN [None]
